FAERS Safety Report 16931015 (Version 2)
Quarter: 2019Q4

REPORT INFORMATION
  Report Type: Spontaneous
  Country: US (occurrence: US)
  Receive Date: 20191017
  Receipt Date: 20191115
  Transmission Date: 20200122
  Serious: Yes (Hospitalization, Other)
  Sender: FDA-Public Use
  Company Number: US-AMGEN-USASP2019167038

PATIENT
  Sex: Female

DRUGS (1)
  1. ARANESP [Suspect]
     Active Substance: DARBEPOETIN ALFA
     Indication: FOETAL HAEMOGLOBIN INCREASED
     Dosage: UNK UNK, QWK
     Route: 065

REACTIONS (5)
  - Cardiac failure congestive [Unknown]
  - Fluid retention [Unknown]
  - Off label use [Unknown]
  - Gallbladder operation [Unknown]
  - Fatigue [Unknown]
